FAERS Safety Report 10506169 (Version 1)
Quarter: 2014Q4

REPORT INFORMATION
  Report Type: Report from Study
  Country: DE (occurrence: DE)
  Receive Date: 20141009
  Receipt Date: 20141009
  Transmission Date: 20150528
  Serious: Yes (Hospitalization)
  Sender: FDA-Public Use
  Company Number: DE-ROCHE-1471327

PATIENT
  Sex: Male
  Weight: 80 kg

DRUGS (2)
  1. RANIBIZUMAB [Suspect]
     Active Substance: RANIBIZUMAB
     Route: 050
     Dates: start: 20140515, end: 20140515
  2. RANIBIZUMAB [Suspect]
     Active Substance: RANIBIZUMAB
     Indication: MACULOPATHY
     Route: 050
     Dates: start: 20140319

REACTIONS (2)
  - Pneumonia [Recovering/Resolving]
  - Hypoglycaemia [Recovering/Resolving]
